FAERS Safety Report 15327711 (Version 1)
Quarter: 2018Q3

REPORT INFORMATION
  Report Type: Spontaneous
  Country: FR (occurrence: FR)
  Receive Date: 20180828
  Receipt Date: 20180828
  Transmission Date: 20181010
  Serious: Yes (Hospitalization)
  Sender: FDA-Public Use
  Company Number: FR-009507513-1805FRA010084

PATIENT
  Age: 78 Year
  Sex: Male
  Weight: 68.1 kg

DRUGS (1)
  1. CUBICIN [Suspect]
     Active Substance: DAPTOMYCIN
     Indication: ENDOCARDITIS BACTERIAL
     Dosage: 850MG, QD
     Route: 042
     Dates: start: 20180327, end: 20180426

REACTIONS (2)
  - Acute respiratory distress syndrome [Recovered/Resolved]
  - Eosinophilic pneumonia [Recovering/Resolving]

NARRATIVE: CASE EVENT DATE: 20180420
